FAERS Safety Report 8564676-X (Version None)
Quarter: 2012Q3

REPORT INFORMATION
  Report Type: 
  Country: None (occurrence: None)
  Receive Date: 20120803
  Receipt Date: 20120725
  Transmission Date: 20120928
  Serious: Yes (Hospitalization, Other)
  Sender: FDA-Public Use
  Company Number: JP-009507513-2012SP024672

PATIENT

DRUGS (16)
  1. TALION (BEPOTASTINE BESYLATE) [Concomitant]
     Indication: PROPHYLAXIS
     Dosage: TRADE NAME: TALION OD, CUMULATIVE DOSE: 40 MG
     Route: 048
     Dates: start: 20120105, end: 20120219
  2. AMINO ACIDS (UNSPECIFIED) (+) DEXTROSE [Concomitant]
     Indication: PRODUCT USED FOR UNKNOWN INDICATION
     Dosage: 500 ML, QD
     Route: 042
     Dates: start: 20120218, end: 20120223
  3. ANTIVIRAL (UNSPECIFIED) [Suspect]
     Indication: HEPATITIS C
     Dosage: 1500 MG, QD
     Route: 048
     Dates: start: 20120106, end: 20120220
  4. PEG-INTRON [Suspect]
     Indication: HEPATITIS C
     Dosage: 100MCG/WEEK
     Route: 058
     Dates: start: 20120106, end: 20120222
  5. PEG-INTRON [Suspect]
     Dosage: 80MCG/WEEK
     Route: 058
     Dates: start: 20120223, end: 20120229
  6. PEG-INTRON [Suspect]
     Dosage: 100MCG/WEEK
     Route: 058
     Dates: start: 20120315
  7. REBETOL [Suspect]
     Dosage: 200 MG, QD
     Route: 048
     Dates: start: 20120216, end: 20120301
  8. REBETOL [Suspect]
     Route: 048
     Dates: start: 20120322, end: 20120613
  9. ANTIVIRAL (UNSPECIFIED) [Suspect]
     Dosage: 1000 MG, QD
     Route: 048
     Dates: start: 20120221, end: 20120301
  10. ZOLPIDEM [Concomitant]
     Indication: INSOMNIA
     Dosage: 2.5 MG, PRN
     Route: 048
     Dates: start: 20120217, end: 20120314
  11. TELAVIC [Suspect]
     Route: 048
     Dates: start: 20120221, end: 20120301
  12. REBETOL [Suspect]
     Indication: HEPATITIS C
     Dosage: 600 MG, QD
     Route: 048
     Dates: start: 20120106, end: 20120215
  13. REBETOL [Suspect]
     Dosage: 400 MG, QD
     Route: 048
     Dates: start: 20120322
  14. REBETOL [Suspect]
     Route: 048
     Dates: start: 20120101
  15. TELAVIC [Suspect]
     Indication: HEPATITIS C
     Route: 048
     Dates: start: 20120106, end: 20120220
  16. TALION (BEPOTASTINE BESYLATE) [Concomitant]
     Route: 048
     Dates: start: 20120105, end: 20120219

REACTIONS (5)
  - BRONCHITIS [None]
  - DECREASED APPETITE [None]
  - HAEMOGLOBIN DECREASED [None]
  - NAUSEA [None]
  - INSOMNIA [None]
